FAERS Safety Report 16355328 (Version 1)
Quarter: 2019Q2

REPORT INFORMATION
  Report Type: Spontaneous
  Country: ES (occurrence: ES)
  Receive Date: 20190525
  Receipt Date: 20190525
  Transmission Date: 20190711
  Serious: Yes (Other)
  Sender: FDA-Public Use
  Company Number: ES-TEVA-2019-ES-1053526

PATIENT
  Age: 66 Year
  Sex: Male

DRUGS (12)
  1. LORMETAZEPAM 1 MG COMPRIMIDO [Concomitant]
  2. FOSTER [Concomitant]
     Active Substance: BECLOMETHASONE\FORMOTEROL
  3. OMEPRAZOL (2141A) [Concomitant]
     Active Substance: OMEPRAZOLE
  4. CITALOPRAM 30 MG COMPRIMIDO [Concomitant]
  5. PREDNISONA 10 MG COMPRIMIDO [Concomitant]
  6. VIVACE 30 MG/10 MG COMPRIMIDOS [Concomitant]
  7. SITAGLIPTINA (8075A) [Suspect]
     Active Substance: SITAGLIPTIN
     Dates: start: 20190301
  8. LIVAZO 2 MG COMPRIMIDOS RECUBIERTOS CON PELICULA [Concomitant]
  9. CARVEDILOL (2431A) [Suspect]
     Active Substance: CARVEDILOL
     Dates: start: 20190303
  10. FERROSANOL [Suspect]
     Active Substance: FERROUS GLUCONATE
     Dates: start: 20190303
  11. IDEOS [Concomitant]
     Active Substance: CALCIUM CARBONATE\CHOLECALCIFEROL
  12. METOTREXATO 2,5 MG COMPRIMIDO [Concomitant]

REACTIONS (2)
  - Liver function test abnormal [Recovering/Resolving]
  - Red man syndrome [Recovering/Resolving]

NARRATIVE: CASE EVENT DATE: 20190304
